FAERS Safety Report 14781805 (Version 1)
Quarter: 2018Q2

REPORT INFORMATION
  Report Type: Spontaneous
  Country: FR (occurrence: FR)
  Receive Date: 20180420
  Receipt Date: 20180420
  Transmission Date: 20180711
  Serious: Yes (Congenital Anomaly)
  Sender: FDA-Public Use
  Company Number: FR-CIPLA LTD.-2018FR15892

PATIENT

DRUGS (2)
  1. LEVETIRACETAM. [Suspect]
     Active Substance: LEVETIRACETAM
     Dosage: UNK
     Route: 064
     Dates: start: 20170510
  2. ACIDE FOLIQUE [Concomitant]
     Active Substance: FOLIC ACID
     Dosage: UNK
     Route: 064
     Dates: end: 201708

REACTIONS (1)
  - Pelvic kidney [Not Recovered/Not Resolved]

NARRATIVE: CASE EVENT DATE: 20171025
